FAERS Safety Report 5048570-7 (Version None)
Quarter: 2006Q2

REPORT INFORMATION
  Report Type: 
  Country: None (occurrence: None)
  Receive Date: 20060601
  Receipt Date: 20060310
  Transmission Date: 20061013
  Serious: No
  Sender: FDA-Public Use
  Company Number: US200603002825

PATIENT
  Age: 41 Year
  Sex: Female

DRUGS (6)
  1. CYMBALTA [Suspect]
     Indication: DEPRESSION
     Dosage: SEE IMAGE
  2. AMBIEN [Concomitant]
  3. SERZONE [Concomitant]
  4. LAMICTAL [Concomitant]
  5. TRAZODONE HCL [Concomitant]
  6. ALPRAZOLAM [Concomitant]

REACTIONS (1)
  - BLOOD PRESSURE INCREASED [None]
